FAERS Safety Report 4926890-1 (Version None)
Quarter: 2006Q1

REPORT INFORMATION
  Report Type: 
  Country: None (occurrence: None)
  Receive Date: 20060228
  Receipt Date: 20050713
  Transmission Date: 20060701
  Serious: No
  Sender: FDA-Public Use
  Company Number: US-GLAXOSMITHKLINE-A0566081A

PATIENT
  Sex: Female

DRUGS (5)
  1. LAMICTAL [Suspect]
     Indication: BIPOLAR DISORDER
     Dosage: 50MG PER DAY
     Route: 048
  2. ZOCOR [Concomitant]
  3. FOSAMAX [Concomitant]
  4. SEROQUEL [Concomitant]
  5. EFFEXOR [Concomitant]

REACTIONS (3)
  - HOT FLUSH [None]
  - MOUTH ULCERATION [None]
  - RASH [None]
